FAERS Safety Report 7622327-2 (Version None)
Quarter: 2011Q3

REPORT INFORMATION
  Report Type: 
  Country: None (occurrence: None)
  Receive Date: 20110720
  Receipt Date: 20090726
  Transmission Date: 20111222
  Serious: Yes (Death)
  Sender: FDA-Public Use
  Company Number: US-BAYER-200927704NA

PATIENT
  Age: 76 Year
  Sex: Female
  Weight: 63 kg

DRUGS (15)
  1. FENTANYL-100 [Concomitant]
  2. NEXIUM [Concomitant]
  3. NIPRIDE [Concomitant]
  4. TRASYLOL [Suspect]
     Indication: CARDIAC ABLATION
  5. GLUCOVANCE [Concomitant]
  6. ALBUMIN (HUMAN) [Concomitant]
     Dosage: 50CC
  7. DOBUTAMINE HCL [Concomitant]
     Dosage: UNK
     Route: 042
     Dates: end: 20050211
  8. AMIODARONE HCL [Concomitant]
     Dosage: UNK
     Route: 042
     Dates: end: 20050205
  9. ZAROXOLYN [Concomitant]
  10. HEPARIN [Concomitant]
     Dosage: UNK
     Route: 042
     Dates: start: 20050210
  11. TRASYLOL [Suspect]
     Indication: COX-MAZE PROCEDURE
  12. SODIUM BICARBONATE [Concomitant]
     Dosage: 50MEQ
  13. TRASYLOL [Suspect]
     Indication: CORONARY ARTERY BYPASS
     Route: 042
     Dates: start: 20050201
  14. SECTRAL [Concomitant]
  15. COUMADIN [Concomitant]
     Dosage: 4MG

REACTIONS (2)
  - INJURY [None]
  - RENAL FAILURE [None]
